FAERS Safety Report 4344166-0 (Version None)
Quarter: 2004Q2

REPORT INFORMATION
  Report Type: 
  Country: None (occurrence: None)
  Receive Date: 20040419
  Receipt Date: 20040410
  Transmission Date: 20050107
  Serious: Yes (Other)
  Sender: FDA-Public Use
  Company Number: 2004-04-0582

PATIENT
  Age: 33 Year
  Sex: Male

DRUGS (6)
  1. PEG INTERFERON ALFA 2B INJECTABLE POWDER [Suspect]
     Indication: HEPATITIS ACUTE
     Dosage: 1.5 - .75 UG/KG SUBCUTANEOUS
     Route: 058
     Dates: start: 20010730, end: 20011022
  2. PEG INTERFERON ALFA 2B INJECTABLE POWDER [Suspect]
     Indication: HEPATITIS ACUTE
     Dosage: 1.5 - .75 UG/KG SUBCUTANEOUS
     Route: 058
     Dates: start: 20011023, end: 20011105
  3. PEG INTERFERON ALFA 2B INJECTABLE POWDER [Suspect]
     Indication: HEPATITIS ACUTE
     Dosage: 1.5 - .75 UG/KG SUBCUTANEOUS
     Route: 058
     Dates: start: 20011106, end: 20011119
  4. PEG INTERFERON ALFA 2B INJECTABLE POWDER [Suspect]
     Indication: HEPATITIS ACUTE
     Dosage: 1.5 - .75 UG/KG SUBCUTANEOUS
     Route: 058
     Dates: start: 20010730, end: 20020114
  5. PEG INTERFERON ALFA 2B INJECTABLE POWDER [Suspect]
     Indication: HEPATITIS ACUTE
     Dosage: 1.5 - .75 UG/KG SUBCUTANEOUS
     Route: 058
     Dates: start: 20011120, end: 20020114
  6. RIBAVIRIN [Suspect]
     Indication: HEPATITIS ACUTE
     Dosage: 1000 MG QD ORAL
     Route: 048
     Dates: start: 20010730, end: 20020114

REACTIONS (6)
  - ASTHENIA [None]
  - BLOOD CREATINE PHOSPHOKINASE INCREASED [None]
  - BLOOD CREATINE PHOSPHOKINASE MB INCREASED [None]
  - MYALGIA [None]
  - NEUTROPENIA [None]
  - TROPONIN I INCREASED [None]
